FAERS Safety Report 11933232 (Version 1)
Quarter: 2016Q1

REPORT INFORMATION
  Report Type: Spontaneous
  Country: CA (occurrence: CA)
  Receive Date: 20160121
  Receipt Date: 20160121
  Transmission Date: 20160526
  Serious: Yes (Other)
  Sender: FDA-Public Use
  Company Number: CA-AMGEN-CANSP2016004828

PATIENT
  Sex: Female

DRUGS (12)
  1. SULFASALAZINE. [Concomitant]
     Active Substance: SULFASALAZINE
  2. CELEBREX [Concomitant]
     Active Substance: CELECOXIB
  3. SIMPONI [Concomitant]
     Active Substance: GOLIMUMAB
  4. PROLIA [Suspect]
     Active Substance: DENOSUMAB
     Indication: PRODUCT USED FOR UNKNOWN INDICATION
     Dosage: UNK
     Route: 065
  5. METHOTREXATE [Concomitant]
     Active Substance: METHOTREXATE
  6. CIMZIA [Concomitant]
     Active Substance: CERTOLIZUMAB PEGOL
  7. ACTONEL [Concomitant]
     Active Substance: RISEDRONATE SODIUM
  8. PREDNISOL                          /00016201/ [Concomitant]
     Dosage: UNK
  9. ACTEMRA [Concomitant]
     Active Substance: TOCILIZUMAB
  10. ORENCIA [Concomitant]
     Active Substance: ABATACEPT
     Dosage: UNK
  11. ENBREL [Suspect]
     Active Substance: ETANERCEPT
     Indication: RHEUMATOID ARTHRITIS
     Dosage: UNK
     Route: 065
  12. ARAVA [Concomitant]
     Active Substance: LEFLUNOMIDE

REACTIONS (11)
  - Foot fracture [Unknown]
  - General physical health deterioration [Unknown]
  - Condition aggravated [Unknown]
  - Bedridden [Unknown]
  - Arthralgia [Unknown]
  - Mobility decreased [Unknown]
  - Joint swelling [Unknown]
  - Lower limb fracture [Unknown]
  - Drug effect incomplete [Unknown]
  - Activities of daily living impaired [Unknown]
  - Osteoporosis [Unknown]
